FAERS Safety Report 9949303 (Version 1)
Quarter: 2014Q1

REPORT INFORMATION
  Report Type: Report from Study
  Country: US (occurrence: US)
  Receive Date: 20140304
  Receipt Date: 20140304
  Transmission Date: 20141002
  Serious: No
  Sender: FDA-Public Use
  Company Number: US-ABBVIE-13P-163-1066165-00

PATIENT
  Age: 27 Year
  Sex: Female

DRUGS (9)
  1. HUMIRA [Suspect]
     Indication: CROHN^S DISEASE
     Dates: start: 201211
  2. ABILIFY [Concomitant]
     Indication: DEPRESSION
  3. VIIBRYD [Concomitant]
     Indication: DEPRESSION
  4. XANAX [Concomitant]
     Indication: ANXIETY
     Dosage: 2 A DAY AS NEEDED
  5. XANAX [Concomitant]
     Indication: PANIC ATTACK
  6. SPRINTEC [Concomitant]
     Indication: CONTRACEPTION
  7. OMEPRAZOLE [Concomitant]
     Indication: GASTROOESOPHAGEAL REFLUX DISEASE
  8. METHADONE [Concomitant]
     Indication: DRUG DEPENDENCE
  9. METHADONE [Concomitant]
     Indication: PAIN MANAGEMENT

REACTIONS (4)
  - Weight increased [Recovering/Resolving]
  - Nausea [Recovering/Resolving]
  - Vomiting [Recovering/Resolving]
  - Diarrhoea [Recovering/Resolving]
